FAERS Safety Report 4495590-7 (Version None)
Quarter: 2004Q4

REPORT INFORMATION
  Report Type: 
  Country: None (occurrence: None)
  Receive Date: 20041108
  Receipt Date: 20040505
  Transmission Date: 20050328
  Serious: Yes (Hospitalization)
  Sender: FDA-Public Use
  Company Number: US-BRISTOL-MYERS SQUIBB COMPANY-12579785

PATIENT
  Age: 64 Year
  Sex: Male
  Weight: 73 kg

DRUGS (6)
  1. COUMADIN [Suspect]
     Indication: MITRAL VALVE REPLACEMENT
     Dosage: INTERRUPTED AND RESTARTED ON 19-MAR-04 FOR DURATION. DOSE ON 26-OCT-04=9MG,6D/WK AND 7.5MG FOR 1 DAY
     Route: 048
     Dates: start: 20040226
  2. FRAGMIN [Suspect]
  3. ATENOLOL [Concomitant]
  4. VITAMIN E [Concomitant]
  5. M.V.I. [Concomitant]
  6. CORTISONE ACETATE [Concomitant]
     Route: 030

REACTIONS (13)
  - AMNESIA [None]
  - ARTHRALGIA [None]
  - BACK PAIN [None]
  - DYSGEUSIA [None]
  - EPISTAXIS [None]
  - EYE HAEMORRHAGE [None]
  - HAEMORRHAGE [None]
  - HEADACHE [None]
  - HYPOAESTHESIA [None]
  - INTERNATIONAL NORMALISED RATIO INCREASED [None]
  - LOSS OF CONSCIOUSNESS [None]
  - MYALGIA [None]
  - PARAESTHESIA [None]
